FAERS Safety Report 17842380 (Version 6)
Quarter: 2020Q3

REPORT INFORMATION
  Report Type: Spontaneous
  Country: GB (occurrence: GB)
  Receive Date: 20200529
  Receipt Date: 20200826
  Transmission Date: 20201103
  Serious: Yes (Hospitalization)
  Sender: FDA-Public Use
  Company Number: GB-NOVOPROD-730668

PATIENT
  Age: 49 Year
  Sex: Female

DRUGS (1)
  1. NOVORAPID [Suspect]
     Active Substance: INSULIN ASPART
     Indication: TYPE 1 DIABETES MELLITUS
     Dosage: UNK
     Route: 058

REACTIONS (2)
  - Product leakage [Unknown]
  - Diabetic ketoacidosis [Unknown]

NARRATIVE: CASE EVENT DATE: 20200520
